FAERS Safety Report 14133075 (Version 1)
Quarter: 2017Q4

REPORT INFORMATION
  Report Type: Spontaneous
  Country: US (occurrence: US)
  Receive Date: 20171026
  Receipt Date: 20171026
  Transmission Date: 20180321
  Serious: Yes (Other)
  Sender: FDA-Public Use
  Company Number: None

PATIENT
  Age: 60 Year
  Sex: Female
  Weight: 81.45 kg

DRUGS (16)
  1. ARMOUR THYROID [Concomitant]
     Active Substance: THYROID, PORCINE
  2. VITAMIN D [Concomitant]
     Active Substance: CHOLECALCIFEROL
  3. HYDROXYUREA. [Concomitant]
     Active Substance: HYDROXYUREA
  4. PREDNISONE. [Concomitant]
     Active Substance: PREDNISONE
  5. METOPROLOL. [Concomitant]
     Active Substance: METOPROLOL
  6. FOLIC ACID. [Concomitant]
     Active Substance: FOLIC ACID
  7. PRASUGREL. [Suspect]
     Active Substance: PRASUGREL
     Indication: MYOCARDIAL INFARCTION
     Dosage: ?          QUANTITY:1 TABLET(S);?
     Route: 048
     Dates: start: 20171008
  8. HYDROXYCHLOROQUINE [Concomitant]
     Active Substance: HYDROXYCHLOROQUINE
  9. DIGOXIN. [Concomitant]
     Active Substance: DIGOXIN
  10. KLORCONN [Concomitant]
  11. PRASUGREL. [Suspect]
     Active Substance: PRASUGREL
     Indication: ESSENTIAL THROMBOCYTHAEMIA
     Dosage: ?          QUANTITY:1 TABLET(S);?
     Route: 048
     Dates: start: 20171008
  12. SULFASALAZINE. [Concomitant]
     Active Substance: SULFASALAZINE
  13. OXYGEN. [Concomitant]
     Active Substance: OXYGEN
  14. ISOSORB PRASUGREL [Concomitant]
  15. ASPIRIN. [Concomitant]
     Active Substance: ASPIRIN
  16. MAGNESIUM [Concomitant]
     Active Substance: MAGNESIUM

REACTIONS (5)
  - Dyspnoea [None]
  - Product substitution issue [None]
  - Gastrooesophageal reflux disease [None]
  - Emotional distress [None]
  - Loss of personal independence in daily activities [None]

NARRATIVE: CASE EVENT DATE: 20171015
